FAERS Safety Report 22078302 (Version 1)
Quarter: 2023Q1

REPORT INFORMATION
  Report Type: Spontaneous
  Country: CA (occurrence: CA)
  Receive Date: 20230309
  Receipt Date: 20230309
  Transmission Date: 20230417
  Serious: Yes (Death, Life-Threatening, Hospitalization, Disabling, Other)
  Sender: FDA-Public Use
  Company Number: CA-UCBSA-2023010196

PATIENT
  Age: 44 Year
  Sex: Female

DRUGS (345)
  1. CETIRIZINE HYDROCHLORIDE [Suspect]
     Active Substance: CETIRIZINE HYDROCHLORIDE
     Indication: Product used for unknown indication
     Dosage: 10 MILLIGRAM
     Route: 048
  2. CETIRIZINE HYDROCHLORIDE [Suspect]
     Active Substance: CETIRIZINE HYDROCHLORIDE
     Indication: Rheumatoid arthritis
     Dosage: 25 MILLIGRAM
     Route: 048
  3. CETIRIZINE HYDROCHLORIDE [Suspect]
     Active Substance: CETIRIZINE HYDROCHLORIDE
     Dosage: 10 MILLIGRAM
     Route: 065
  4. CETIRIZINE HYDROCHLORIDE [Suspect]
     Active Substance: CETIRIZINE HYDROCHLORIDE
     Dosage: 25 GRAM
     Route: 065
  5. CETIRIZINE HYDROCHLORIDE [Suspect]
     Active Substance: CETIRIZINE HYDROCHLORIDE
     Dosage: 25 MILLIGRAM
     Route: 065
  6. CETIRIZINE HYDROCHLORIDE [Suspect]
     Active Substance: CETIRIZINE HYDROCHLORIDE
     Dosage: 10 MILLIGRAM, ONCE DAILY (QD)
     Route: 065
  7. CETIRIZINE HYDROCHLORIDE [Suspect]
     Active Substance: CETIRIZINE HYDROCHLORIDE
     Dosage: 25 MILLIGRAM
     Route: 048
  8. CETIRIZINE HYDROCHLORIDE [Suspect]
     Active Substance: CETIRIZINE HYDROCHLORIDE
     Dosage: 10 MILLIGRAM, ONCE DAILY (QD)
     Route: 048
  9. CETIRIZINE HYDROCHLORIDE [Suspect]
     Active Substance: CETIRIZINE HYDROCHLORIDE
     Dosage: UNK
     Route: 065
  10. CETIRIZINE HYDROCHLORIDE [Suspect]
     Active Substance: CETIRIZINE HYDROCHLORIDE
     Dosage: 10 MILLIGRAM, ONCE DAILY (QD)
     Route: 048
  11. CETIRIZINE HYDROCHLORIDE [Suspect]
     Active Substance: CETIRIZINE HYDROCHLORIDE
     Dosage: UNK
     Route: 065
  12. CETIRIZINE HYDROCHLORIDE [Suspect]
     Active Substance: CETIRIZINE HYDROCHLORIDE
     Dosage: UNK
     Route: 065
  13. CETIRIZINE HYDROCHLORIDE [Suspect]
     Active Substance: CETIRIZINE HYDROCHLORIDE
     Dosage: 25 MILLIGRAM
     Route: 065
  14. CETIRIZINE HYDROCHLORIDE [Suspect]
     Active Substance: CETIRIZINE HYDROCHLORIDE
     Dosage: UNK
     Route: 065
  15. CETIRIZINE HYDROCHLORIDE [Suspect]
     Active Substance: CETIRIZINE HYDROCHLORIDE
     Dosage: 10 MILLIGRAM, ONCE DAILY (QD)
     Route: 048
  16. CETIRIZINE HYDROCHLORIDE [Suspect]
     Active Substance: CETIRIZINE HYDROCHLORIDE
     Dosage: UNK
     Route: 065
  17. CETIRIZINE HYDROCHLORIDE [Suspect]
     Active Substance: CETIRIZINE HYDROCHLORIDE
     Dosage: 10 MILLIGRAM
     Route: 048
  18. CETIRIZINE HYDROCHLORIDE [Suspect]
     Active Substance: CETIRIZINE HYDROCHLORIDE
     Route: 065
  19. CETIRIZINE HYDROCHLORIDE [Suspect]
     Active Substance: CETIRIZINE HYDROCHLORIDE
     Dosage: 10 MILLIGRAM
     Route: 065
  20. CETIRIZINE HYDROCHLORIDE [Suspect]
     Active Substance: CETIRIZINE HYDROCHLORIDE
     Dosage: 10 MILLIGRAM, ONCE DAILY (QD)
     Route: 048
  21. CETIRIZINE HYDROCHLORIDE [Suspect]
     Active Substance: CETIRIZINE HYDROCHLORIDE
     Dosage: 10 MILLIGRAM
     Route: 048
  22. CETIRIZINE HYDROCHLORIDE [Suspect]
     Active Substance: CETIRIZINE HYDROCHLORIDE
     Indication: Product used for unknown indication
     Dosage: 10 MILLIGRAM
     Route: 065
  23. CETIRIZINE HYDROCHLORIDE [Suspect]
     Active Substance: CETIRIZINE HYDROCHLORIDE
     Indication: Rheumatoid arthritis
     Dosage: UNK
     Route: 065
  24. CETIRIZINE HYDROCHLORIDE [Suspect]
     Active Substance: CETIRIZINE HYDROCHLORIDE
     Dosage: 10 MILLIGRAM
     Route: 048
  25. CETIRIZINE HYDROCHLORIDE\PSEUDOEPHEDRINE HYDROCHLORIDE [Suspect]
     Active Substance: CETIRIZINE HYDROCHLORIDE\PSEUDOEPHEDRINE HYDROCHLORIDE
     Indication: Product used for unknown indication
     Dosage: 10 MILLIGRAM
     Route: 048
  26. CETIRIZINE HYDROCHLORIDE\PSEUDOEPHEDRINE HYDROCHLORIDE [Suspect]
     Active Substance: CETIRIZINE HYDROCHLORIDE\PSEUDOEPHEDRINE HYDROCHLORIDE
     Indication: Rheumatoid arthritis
     Dosage: 10 MILLIGRAM
     Route: 065
  27. CETIRIZINE HYDROCHLORIDE\PSEUDOEPHEDRINE HYDROCHLORIDE [Suspect]
     Active Substance: CETIRIZINE HYDROCHLORIDE\PSEUDOEPHEDRINE HYDROCHLORIDE
     Dosage: EXTENDED RELEASE
     Route: 065
  28. CETIRIZINE HYDROCHLORIDE\PSEUDOEPHEDRINE HYDROCHLORIDE [Suspect]
     Active Substance: CETIRIZINE HYDROCHLORIDE\PSEUDOEPHEDRINE HYDROCHLORIDE
     Dosage: 25 MILLIGRAM
     Route: 065
  29. ACETAMINOPHEN [Suspect]
     Active Substance: ACETAMINOPHEN
     Indication: Rheumatoid arthritis
     Dosage: 10 MILLIGRAM
     Route: 065
  30. ACETAMINOPHEN [Suspect]
     Active Substance: ACETAMINOPHEN
     Indication: Product used for unknown indication
     Dosage: UNK
     Route: 065
  31. REMICADE [Suspect]
     Active Substance: INFLIXIMAB
     Indication: Product used for unknown indication
     Dosage: UNK
     Route: 065
  32. REMICADE [Suspect]
     Active Substance: INFLIXIMAB
     Indication: Rheumatoid arthritis
     Dosage: 400 MILLIGRAM
     Route: 065
  33. REMICADE [Suspect]
     Active Substance: INFLIXIMAB
     Dosage: 500 MILLIGRAM
     Route: 042
  34. REMICADE [Suspect]
     Active Substance: INFLIXIMAB
     Dosage: UNK
     Route: 042
  35. REMICADE [Suspect]
     Active Substance: INFLIXIMAB
     Route: 042
  36. REMICADE [Suspect]
     Active Substance: INFLIXIMAB
     Route: 042
  37. STELARA [Suspect]
     Active Substance: USTEKINUMAB
     Indication: Product used for unknown indication
     Dosage: SOLUTION SUBCUTANEOUS
     Route: 065
  38. STELARA [Suspect]
     Active Substance: USTEKINUMAB
     Indication: Psoriatic arthropathy
     Dosage: 45 MILLIGRAM
     Route: 058
  39. STELARA [Suspect]
     Active Substance: USTEKINUMAB
     Dosage: UNK
     Route: 042
  40. STELARA [Suspect]
     Active Substance: USTEKINUMAB
     Dosage: UNK
     Route: 058
  41. STELARA [Suspect]
     Active Substance: USTEKINUMAB
     Route: 042
  42. STELARA [Suspect]
     Active Substance: USTEKINUMAB
     Route: 058
  43. SIMPONI [Suspect]
     Active Substance: GOLIMUMAB
     Indication: Rheumatoid arthritis
     Dosage: UNK
     Route: 058
  44. SIMPONI [Suspect]
     Active Substance: GOLIMUMAB
     Indication: Product used for unknown indication
     Dosage: UNK
     Route: 065
  45. SIMPONI [Suspect]
     Active Substance: GOLIMUMAB
     Indication: Psoriatic arthropathy
     Route: 058
  46. SIMPONI [Suspect]
     Active Substance: GOLIMUMAB
     Route: 065
  47. SIMPONI [Suspect]
     Active Substance: GOLIMUMAB
     Route: 058
  48. SIMPONI [Suspect]
     Active Substance: GOLIMUMAB
     Route: 042
  49. SIMPONI [Suspect]
     Active Substance: GOLIMUMAB
     Route: 052
  50. PSEUDOEPHEDRINE HYDROCHLORIDE [Suspect]
     Active Substance: PSEUDOEPHEDRINE HYDROCHLORIDE
     Indication: Product used for unknown indication
     Dosage: UNK
     Route: 065
  51. PSEUDOEPHEDRINE HYDROCHLORIDE [Suspect]
     Active Substance: PSEUDOEPHEDRINE HYDROCHLORIDE
     Indication: Rheumatoid arthritis
     Route: 065
  52. PSEUDOEPHEDRINE HYDROCHLORIDE [Suspect]
     Active Substance: PSEUDOEPHEDRINE HYDROCHLORIDE
     Route: 065
  53. PSEUDOEPHEDRINE HYDROCHLORIDE [Suspect]
     Active Substance: PSEUDOEPHEDRINE HYDROCHLORIDE
     Route: 065
  54. CIMZIA [Suspect]
     Active Substance: CERTOLIZUMAB PEGOL
     Indication: Rheumatoid arthritis
     Dosage: UNK
     Route: 065
  55. CIMZIA [Suspect]
     Active Substance: CERTOLIZUMAB PEGOL
     Indication: Product used for unknown indication
     Dosage: 400 MILLIGRAM
     Route: 058
  56. CIMZIA [Suspect]
     Active Substance: CERTOLIZUMAB PEGOL
     Dosage: 10 MILLIGRAM
     Route: 058
  57. CIMZIA [Suspect]
     Active Substance: CERTOLIZUMAB PEGOL
     Dosage: UNK
     Route: 058
  58. CIMZIA [Suspect]
     Active Substance: CERTOLIZUMAB PEGOL
     Dosage: 1 DOSAGE FORM, ONCE DAILY (QD)
     Route: 058
  59. CIMZIA [Suspect]
     Active Substance: CERTOLIZUMAB PEGOL
     Dosage: UNK
     Route: 058
  60. CIMZIA [Suspect]
     Active Substance: CERTOLIZUMAB PEGOL
     Dosage: UNK
     Route: 065
  61. CIMZIA [Suspect]
     Active Substance: CERTOLIZUMAB PEGOL
     Dosage: 200 MILLIGRAM
     Route: 058
  62. CIMZIA [Suspect]
     Active Substance: CERTOLIZUMAB PEGOL
     Dosage: UNK
     Route: 065
  63. CIMZIA [Suspect]
     Active Substance: CERTOLIZUMAB PEGOL
     Dosage: 400 MILLIGRAM
     Route: 065
  64. ACTEMRA [Suspect]
     Active Substance: TOCILIZUMAB
     Indication: Rheumatoid arthritis
     Dosage: 728 MILLIGRAM
     Route: 042
  65. ACTEMRA [Suspect]
     Active Substance: TOCILIZUMAB
     Indication: Product used for unknown indication
     Dosage: 2912.0 MILLIGRAM
     Route: 042
  66. ACTEMRA [Suspect]
     Active Substance: TOCILIZUMAB
     Dosage: UNK NOT SPECIFIED
     Route: 065
  67. ACTEMRA [Suspect]
     Active Substance: TOCILIZUMAB
     Dosage: 2912.0 MILLIGRAM
     Route: 065
  68. ACTEMRA [Suspect]
     Active Substance: TOCILIZUMAB
     Dosage: 3011.2 MILLIGRAM
     Route: 042
  69. ACTEMRA [Suspect]
     Active Substance: TOCILIZUMAB
     Dosage: 752.8 MILLIGRAM
     Route: 042
  70. ACTEMRA [Suspect]
     Active Substance: TOCILIZUMAB
     Dosage: 752.0 MILLIGRAM
     Route: 042
  71. ACTEMRA [Suspect]
     Active Substance: TOCILIZUMAB
     Dosage: 728.0 MILLIGRAM
     Route: 042
  72. ACTEMRA [Suspect]
     Active Substance: TOCILIZUMAB
     Dosage: 3011.2 MILLIGRAM
     Route: 042
  73. ACTEMRA [Suspect]
     Active Substance: TOCILIZUMAB
     Dosage: 1 DOSAGE FORM
     Route: 042
  74. ACTEMRA [Suspect]
     Active Substance: TOCILIZUMAB
     Dosage: UNK
     Route: 058
  75. ACTEMRA [Suspect]
     Active Substance: TOCILIZUMAB
     Dosage: 752.8 MILLIGRAM
     Route: 042
  76. ACTEMRA [Suspect]
     Active Substance: TOCILIZUMAB
     Dosage: UNK
     Route: 042
  77. ADALIMUMAB [Suspect]
     Active Substance: ADALIMUMAB
     Indication: Psoriatic arthropathy
     Dosage: SOLUTION
     Route: 058
  78. ADALIMUMAB [Suspect]
     Active Substance: ADALIMUMAB
     Indication: Product used for unknown indication
     Dosage: 40 MILLIGRAM
     Route: 058
  79. ADALIMUMAB [Suspect]
     Active Substance: ADALIMUMAB
     Dosage: 40 MILLIGRAM
     Route: 048
  80. ADALIMUMAB [Suspect]
     Active Substance: ADALIMUMAB
     Dosage: UNK
     Route: 058
  81. ALENDRONIC ACID [Suspect]
     Active Substance: ALENDRONIC ACID
     Indication: Rheumatoid arthritis
     Dosage: 1 MILLIGRAM
     Route: 065
  82. ALENDRONIC ACID [Suspect]
     Active Substance: ALENDRONIC ACID
     Indication: Product used for unknown indication
     Dosage: UNK
     Route: 048
  83. ALENDRONIC ACID [Suspect]
     Active Substance: ALENDRONIC ACID
     Dosage: UNK
     Route: 048
  84. ALENDRONIC ACID [Suspect]
     Active Substance: ALENDRONIC ACID
     Dosage: UNK
     Route: 065
  85. ALENDRONIC ACID [Suspect]
     Active Substance: ALENDRONIC ACID
     Dosage: UNK
     Route: 065
  86. PREDNISONE [Suspect]
     Active Substance: PREDNISONE
     Indication: Product used for unknown indication
     Dosage: 1 MILLIGRAM
     Route: 065
  87. PREDNISONE [Suspect]
     Active Substance: PREDNISONE
     Indication: Rheumatoid arthritis
     Route: 065
  88. APREMILAST [Suspect]
     Active Substance: APREMILAST
     Indication: Product used for unknown indication
     Dosage: 3 MILLIGRAM
     Route: 065
  89. APREMILAST [Suspect]
     Active Substance: APREMILAST
     Dosage: UNK
     Route: 042
  90. ARAVA [Suspect]
     Active Substance: LEFLUNOMIDE
     Indication: Product used for unknown indication
     Dosage: 20 MILLIGRAM
     Route: 048
  91. ARAVA [Suspect]
     Active Substance: LEFLUNOMIDE
     Indication: Rheumatoid arthritis
     Dosage: 20 MILLIGRAM, ONCE DAILY (QD)
     Route: 048
  92. ARAVA [Suspect]
     Active Substance: LEFLUNOMIDE
     Dosage: UNK
     Route: 065
  93. ARAVA [Suspect]
     Active Substance: LEFLUNOMIDE
     Dosage: UNK
     Route: 065
  94. ARAVA [Suspect]
     Active Substance: LEFLUNOMIDE
     Dosage: UNK
     Route: 048
  95. CALCIUM CARBONATE [Suspect]
     Active Substance: CALCIUM CARBONATE
     Indication: Product used for unknown indication
     Route: 065
  96. CALCIUM CARBONATE\CALCIUM LACTATE GLUCONATE [Suspect]
     Active Substance: CALCIUM CARBONATE\CALCIUM LACTATE GLUCONATE
     Indication: Product used for unknown indication
     Dosage: UNK
     Route: 065
  97. CALCIUM GLUBIONATE [Suspect]
     Active Substance: CALCIUM GLUBIONATE
     Indication: Product used for unknown indication
     Dosage: UNK
     Route: 065
  98. CELEBREX [Suspect]
     Active Substance: CELECOXIB
     Indication: Product used for unknown indication
     Dosage: 2 DOSAGE FORM, ONCE DAILY (QD)
     Route: 048
  99. CELECOXIB [Suspect]
     Active Substance: CELECOXIB
     Indication: Product used for unknown indication
     Dosage: UNK
     Route: 065
  100. CELECOXIB [Suspect]
     Active Substance: CELECOXIB
     Dosage: 1 DOSAGE FORM
     Route: 065
  101. CHLORAPREP [Suspect]
     Active Substance: CHLORHEXIDINE GLUCONATE\ISOPROPYL ALCOHOL
     Indication: Product used for unknown indication
     Dosage: SOLUTION
     Route: 065
  102. CHLORAPREP [Suspect]
     Active Substance: CHLORHEXIDINE GLUCONATE\ISOPROPYL ALCOHOL
     Dosage: UNK
     Route: 061
  103. CHLORHEXIDINE [Suspect]
     Active Substance: CHLORHEXIDINE
     Indication: Product used for unknown indication
     Dosage: UNK
     Route: 002
  104. CHLORHEXIDINE [Suspect]
     Active Substance: CHLORHEXIDINE
     Dosage: UNK
     Route: 065
  105. CHLORHEXIDINE [Suspect]
     Active Substance: CHLORHEXIDINE
     Dosage: UNK
     Route: 048
  106. CHLORHEXIDINE [Suspect]
     Active Substance: CHLORHEXIDINE
     Dosage: NOT SPECIFIED
     Route: 061
  107. CHLORHEXIDINE GLUCONATE [Suspect]
     Active Substance: CHLORHEXIDINE GLUCONATE
     Indication: Product used for unknown indication
     Dosage: UNK
     Route: 061
  108. CHLORHEXIDINE GLUCONATE [Suspect]
     Active Substance: CHLORHEXIDINE GLUCONATE
     Dosage: UNK
     Route: 002
  109. CHLORHEXIDINE GLUCONATE [Suspect]
     Active Substance: CHLORHEXIDINE GLUCONATE
     Dosage: UNK
     Route: 048
  110. CORTISONE ACETATE [Suspect]
     Active Substance: CORTISONE ACETATE
     Indication: Product used for unknown indication
     Dosage: 25 MILLIGRAM
     Route: 048
  111. CORTISONE ACETATE [Suspect]
     Active Substance: CORTISONE ACETATE
     Indication: Rheumatoid arthritis
     Dosage: UNK
     Route: 048
  112. CORTISONE ACETATE [Suspect]
     Active Substance: CORTISONE ACETATE
     Dosage: 25 MILLIGRAM
     Route: 065
  113. CORTISONE ACETATE [Suspect]
     Active Substance: CORTISONE ACETATE
     Dosage: 25 MILLIGRAM
     Route: 065
  114. CORTISONE ACETATE [Suspect]
     Active Substance: CORTISONE ACETATE
     Dosage: UNK
     Route: 048
  115. CORTISONE ACETATE [Suspect]
     Active Substance: CORTISONE ACETATE
     Dosage: 25 MILLIGRAM
     Route: 061
  116. COSENTYX [Suspect]
     Active Substance: SECUKINUMAB
     Indication: Psoriatic arthropathy
     Dosage: UNK
     Route: 065
  117. COSENTYX [Suspect]
     Active Substance: SECUKINUMAB
     Indication: Rheumatoid arthritis
     Dosage: UNK
     Route: 005
  118. DESOXIMETASONE [Suspect]
     Active Substance: DESOXIMETASONE
     Indication: Product used for unknown indication
     Dosage: UNK
     Route: 058
  119. DESOXIMETASONE [Suspect]
     Active Substance: DESOXIMETASONE
     Indication: Rheumatoid arthritis
     Dosage: UNK
     Route: 003
  120. DESOXIMETASONE [Suspect]
     Active Substance: DESOXIMETASONE
     Indication: Product used for unknown indication
     Dosage: UNK
     Route: 061
  121. DESOXIMETASONE [Suspect]
     Active Substance: DESOXIMETASONE
     Indication: Rheumatoid arthritis
     Dosage: UNK
     Route: 048
  122. DESOXIMETASONE [Suspect]
     Active Substance: DESOXIMETASONE
     Dosage: UNK
     Route: 048
  123. DESOXIMETASONE [Suspect]
     Active Substance: DESOXIMETASONE
     Dosage: 25 MILLIGRAM, WEEKLY (QW)
     Route: 048
  124. DESOXIMETASONE [Suspect]
     Active Substance: DESOXIMETASONE
     Dosage: 25 MILLIGRAM
     Route: 065
  125. DESOXIMETASONE [Suspect]
     Active Substance: DESOXIMETASONE
     Dosage: UNK
     Route: 065
  126. DESOXIMETASONE [Suspect]
     Active Substance: DESOXIMETASONE
     Dosage: 25 MILLIGRAM
     Route: 003
  127. DESOXIMETASONE [Suspect]
     Active Substance: DESOXIMETASONE
     Dosage: UNK
     Route: 048
  128. DESOXIMETASONE [Suspect]
     Active Substance: DESOXIMETASONE
     Dosage: UNK
     Route: 048
  129. DESOXIMETASONE [Suspect]
     Active Substance: DESOXIMETASONE
     Dosage: UNK
     Route: 065
  130. DESOXIMETASONE [Suspect]
     Active Substance: DESOXIMETASONE
     Dosage: UNK
     Route: 048
  131. DESOXIMETASONE [Suspect]
     Active Substance: DESOXIMETASONE
     Dosage: UNK
     Route: 042
  132. DESOXIMETASONE [Suspect]
     Active Substance: DESOXIMETASONE
     Dosage: 5 MILLIGRAM
     Route: 065
  133. DESOXIMETASONE [Suspect]
     Active Substance: DESOXIMETASONE
     Dosage: 25 MILLIGRAM
     Route: 048
  134. DESOXIMETASONE [Suspect]
     Active Substance: DESOXIMETASONE
     Dosage: UNK
     Route: 065
  135. DESOXIMETASONE [Suspect]
     Active Substance: DESOXIMETASONE
     Dosage: 25 MILLIGRAM
     Route: 061
  136. DESOXIMETASONE [Suspect]
     Active Substance: DESOXIMETASONE
     Dosage: 25 MILLIGRAM
     Route: 065
  137. DESOXIMETASONE [Suspect]
     Active Substance: DESOXIMETASONE
     Dosage: UNK
     Route: 048
  138. DESOXIMETASONE [Suspect]
     Active Substance: DESOXIMETASONE
     Dosage: UNK
     Route: 003
  139. DESOXIMETASONE [Suspect]
     Active Substance: DESOXIMETASONE
     Dosage: UNK
     Route: 058
  140. DESOXIMETASONE [Suspect]
     Active Substance: DESOXIMETASONE
     Dosage: UNK
     Route: 065
  141. DESOXIMETASONE [Suspect]
     Active Substance: DESOXIMETASONE
     Dosage: UNK
     Route: 048
  142. DESOXIMETASONE [Suspect]
     Active Substance: DESOXIMETASONE
     Dosage: UNK
     Route: 003
  143. DESOXIMETASONE [Suspect]
     Active Substance: DESOXIMETASONE
     Dosage: UNK
     Route: 058
  144. DICLOFENAC DIETHYLAMINE [Suspect]
     Active Substance: DICLOFENAC DIETHYLAMINE
     Indication: Product used for unknown indication
     Dosage: UNK
     Route: 065
  145. DICLOFENAC SODIUM [Suspect]
     Active Substance: DICLOFENAC SODIUM
     Indication: Product used for unknown indication
     Route: 058
  146. DICLOFENAC SODIUM [Suspect]
     Active Substance: DICLOFENAC SODIUM
     Route: 048
  147. DICLOFENAC SODIUM [Suspect]
     Active Substance: DICLOFENAC SODIUM
     Route: 065
  148. DICLOFENAC SODIUM [Suspect]
     Active Substance: DICLOFENAC SODIUM
     Dosage: 50 MILLIGRAM
     Route: 065
  149. DICLOFENAC SODIUM [Suspect]
     Active Substance: DICLOFENAC SODIUM
     Route: 065
  150. DICLOFENAC SODIUM [Suspect]
     Active Substance: DICLOFENAC SODIUM
     Route: 047
  151. DICLOFENAC SODIUM [Suspect]
     Active Substance: DICLOFENAC SODIUM
     Route: 058
  152. DICLOFENAC SODIUM [Suspect]
     Active Substance: DICLOFENAC SODIUM
     Route: 058
  153. DICLOFENAC POTASSIUM [Suspect]
     Active Substance: DICLOFENAC POTASSIUM
     Indication: Product used for unknown indication
     Dosage: UNK
     Route: 048
  154. DICLOFENAC POTASSIUM [Suspect]
     Active Substance: DICLOFENAC POTASSIUM
     Dosage: UNK
     Route: 065
  155. DOXYCYCLINE [Suspect]
     Active Substance: DOXYCYCLINE
     Indication: Product used for unknown indication
     Dosage: 40 MILLIGRAM
     Route: 065
  156. ENBREL [Suspect]
     Active Substance: ETANERCEPT
     Indication: Product used for unknown indication
     Dosage: 20 MILLIGRAM, WEEKLY (QW)
     Route: 058
  157. ENBREL [Suspect]
     Active Substance: ETANERCEPT
     Indication: Rheumatoid arthritis
     Dosage: UNK
     Route: 065
  158. ENBREL [Suspect]
     Active Substance: ETANERCEPT
     Indication: Psoriatic arthropathy
     Dosage: UNK
     Route: 058
  159. ENBREL [Suspect]
     Active Substance: ETANERCEPT
     Dosage: 50 MILLIGRAM, WEEKLY (QW)
     Route: 058
  160. ENBREL [Suspect]
     Active Substance: ETANERCEPT
     Dosage: 50 MILLIGRAM
     Route: 058
  161. ERELZI [Suspect]
     Active Substance: ETANERCEPT-SZZS
     Indication: Product used for unknown indication
     Dosage: UNK
     Route: 058
  162. ERELZI [Suspect]
     Active Substance: ETANERCEPT-SZZS
     Indication: Rheumatoid arthritis
     Dosage: 50 MILLIGRAM, WEEKLY (QW)
     Route: 058
  163. ERELZI [Suspect]
     Active Substance: ETANERCEPT-SZZS
     Dosage: UNK
     Route: 065
  164. FLUMETHASONE PIVALATE [Suspect]
     Active Substance: FLUMETHASONE PIVALATE
     Indication: Rheumatoid arthritis
     Dosage: UNK
     Route: 058
  165. FOLIC ACID [Suspect]
     Active Substance: FOLIC ACID
     Indication: Product used for unknown indication
     Dosage: 500 MILLIGRAM
     Route: 048
  166. FOLIC ACID [Suspect]
     Active Substance: FOLIC ACID
     Indication: Rheumatoid arthritis
     Route: 065
  167. FOLIC ACID [Suspect]
     Active Substance: FOLIC ACID
     Dosage: 500 MILLIGRAM
     Route: 065
  168. FOLIC ACID [Suspect]
     Active Substance: FOLIC ACID
     Dosage: 15 MG
     Route: 048
  169. FOLIC ACID [Suspect]
     Active Substance: FOLIC ACID
     Dosage: 1 MILLIGRAM
     Route: 048
  170. FOLIC ACID [Suspect]
     Active Substance: FOLIC ACID
     Route: 065
  171. FOLIC ACID [Suspect]
     Active Substance: FOLIC ACID
     Route: 065
  172. FOLIC ACID [Suspect]
     Active Substance: FOLIC ACID
     Route: 065
  173. FOLIC ACID [Suspect]
     Active Substance: FOLIC ACID
     Dosage: 5 MILLIGRAM
     Route: 048
  174. FOLIC ACID [Suspect]
     Active Substance: FOLIC ACID
     Route: 065
  175. FOLIC ACID [Suspect]
     Active Substance: FOLIC ACID
     Route: 065
  176. FOLIC ACID [Suspect]
     Active Substance: FOLIC ACID
     Dosage: 25 MILLIGRAM
     Route: 048
  177. FOLIC ACID [Suspect]
     Active Substance: FOLIC ACID
     Route: 058
  178. FOSAMAX [Suspect]
     Active Substance: ALENDRONATE SODIUM
     Indication: Product used for unknown indication
     Dosage: UNK
     Route: 048
  179. FOSAMAX [Suspect]
     Active Substance: ALENDRONATE SODIUM
     Indication: Rheumatoid arthritis
     Dosage: UNK
     Route: 065
  180. HUMIRA [Suspect]
     Active Substance: ADALIMUMAB
     Indication: Product used for unknown indication
     Dosage: UNK
     Route: 065
  181. HUMIRA [Suspect]
     Active Substance: ADALIMUMAB
     Indication: Rheumatoid arthritis
     Dosage: 40 MILLIGRAM
     Route: 058
  182. HUMIRA [Suspect]
     Active Substance: ADALIMUMAB
     Indication: Psoriatic arthropathy
     Dosage: 40 MILLIGRAM
     Route: 058
  183. HUMIRA [Suspect]
     Active Substance: ADALIMUMAB
     Dosage: UNK
     Route: 065
  184. HUMIRA [Suspect]
     Active Substance: ADALIMUMAB
     Dosage: 40 MILLIGRAM
     Route: 058
  185. HUMIRA [Suspect]
     Active Substance: ADALIMUMAB
     Dosage: 400 MILLIGRAM
     Route: 058
  186. HYDROCORTISONE BUTYRATE [Suspect]
     Active Substance: HYDROCORTISONE BUTYRATE
     Indication: Product used for unknown indication
     Dosage: UNK
     Route: 065
  187. HYDROCORTISONE BUTYRATE [Suspect]
     Active Substance: HYDROCORTISONE BUTYRATE
     Indication: Rheumatoid arthritis
     Dosage: UNK
     Route: 058
  188. HYDROXYCHLOROQUINE [Suspect]
     Active Substance: HYDROXYCHLOROQUINE
     Indication: Product used for unknown indication
     Dosage: 40 MILLIGRAM, ONCE DAILY (QD)
     Route: 065
  189. HYDROXYCHLOROQUINE [Suspect]
     Active Substance: HYDROXYCHLOROQUINE
     Indication: Rheumatoid arthritis
     Dosage: 400 MILLIGRAM
     Route: 065
  190. HYDROXYCHLOROQUINE [Suspect]
     Active Substance: HYDROXYCHLOROQUINE
     Dosage: 400 MILLIGRAM
     Route: 048
  191. HYDROXYCHLOROQUINE [Suspect]
     Active Substance: HYDROXYCHLOROQUINE
     Dosage: 400 MILLIGRAM, ONCE DAILY (QD)
     Route: 065
  192. HYDROXYCHLOROQUINE [Suspect]
     Active Substance: HYDROXYCHLOROQUINE
     Dosage: UNK
     Route: 048
  193. HYDROXYCHLOROQUINE [Suspect]
     Active Substance: HYDROXYCHLOROQUINE
     Dosage: UNK
     Route: 065
  194. HYDROXYCHLOROQUINE [Suspect]
     Active Substance: HYDROXYCHLOROQUINE
     Dosage: 400 MILLIGRAM, ONCE DAILY (QD)
     Route: 065
  195. HYDROXYCHLOROQUINE [Suspect]
     Active Substance: HYDROXYCHLOROQUINE
     Dosage: 400 MILLIGRAM
     Route: 048
  196. HYDROXYCHLOROQUINE [Suspect]
     Active Substance: HYDROXYCHLOROQUINE
     Dosage: 400 MILLIGRAM
     Route: 065
  197. HYDROXYCHLOROQUINE SULFATE [Suspect]
     Active Substance: HYDROXYCHLOROQUINE SULFATE
     Indication: Product used for unknown indication
     Dosage: 40 MILLIGRAM, ONCE DAILY (QD)
     Route: 065
  198. HYDROXYCHLOROQUINE SULFATE [Suspect]
     Active Substance: HYDROXYCHLOROQUINE SULFATE
     Indication: Rheumatoid arthritis
     Dosage: 40 MILLIGRAM, ONCE DAILY (QD)
     Route: 048
  199. HYDROXYCHLOROQUINE SULFATE [Suspect]
     Active Substance: HYDROXYCHLOROQUINE SULFATE
     Indication: Systemic lupus erythematosus
     Dosage: 400 MILLIGRAM
     Route: 048
  200. HYDROXYCHLOROQUINE SULFATE [Suspect]
     Active Substance: HYDROXYCHLOROQUINE SULFATE
     Dosage: UNK
     Route: 048
  201. HYDROXYCHLOROQUINE SULFATE [Suspect]
     Active Substance: HYDROXYCHLOROQUINE SULFATE
     Dosage: UNK
     Route: 065
  202. HYDROXYCHLOROQUINE SULFATE [Suspect]
     Active Substance: HYDROXYCHLOROQUINE SULFATE
     Dosage: 5 MILLIGRAM
     Route: 048
  203. HYDROXYCHLOROQUINE SULFATE [Suspect]
     Active Substance: HYDROXYCHLOROQUINE SULFATE
     Dosage: 400 MILLIGRAM
     Route: 065
  204. HYDROXYCHLOROQUINE SULFATE [Suspect]
     Active Substance: HYDROXYCHLOROQUINE SULFATE
     Dosage: 400 MILLIGRAM, ONCE DAILY (QD)
     Route: 065
  205. HYDROXYCHLOROQUINE SULFATE [Suspect]
     Active Substance: HYDROXYCHLOROQUINE SULFATE
     Dosage: 400 MILLIGRAM, ONCE DAILY (QD)
     Route: 058
  206. ISOPROPYL ALCOHOL [Suspect]
     Active Substance: ISOPROPYL ALCOHOL
     Indication: Product used for unknown indication
     Dosage: LIQUID TOPICAL
     Route: 061
  207. LEFLUNOMIDE [Suspect]
     Active Substance: LEFLUNOMIDE
     Indication: Product used for unknown indication
     Dosage: 20 MILLIGRAM
     Route: 048
  208. LEFLUNOMIDE [Suspect]
     Active Substance: LEFLUNOMIDE
     Indication: Rheumatoid arthritis
     Dosage: UNK
     Route: 065
  209. LEFLUNOMIDE [Suspect]
     Active Substance: LEFLUNOMIDE
     Dosage: UNK
     Route: 048
  210. LYRICA [Suspect]
     Active Substance: PREGABALIN
     Indication: Product used for unknown indication
     Dosage: UNK
     Route: 065
  211. METHOTREXATE [Suspect]
     Active Substance: METHOTREXATE
     Indication: Product used for unknown indication
     Dosage: UNK
     Route: 048
  212. METHOTREXATE [Suspect]
     Active Substance: METHOTREXATE
     Indication: Rheumatoid arthritis
     Dosage: 20 MILLIGRAM
     Route: 048
  213. METHOTREXATE [Suspect]
     Active Substance: METHOTREXATE
     Dosage: 25 MILLIGRAM (STARTED 11 YEARS AGO)
     Route: 048
  214. METHOTREXATE [Suspect]
     Active Substance: METHOTREXATE
     Dosage: UNK
     Route: 013
  215. METHOTREXATE [Suspect]
     Active Substance: METHOTREXATE
     Dosage: 20 MILLIGRAM
     Route: 058
  216. METHOTREXATE [Suspect]
     Active Substance: METHOTREXATE
     Dosage: 25 MILLIGRAM, ONCE DAILY (QD)
     Route: 048
  217. METHOTREXATE [Suspect]
     Active Substance: METHOTREXATE
     Dosage: 25 MILLIGRAM, WEEKLY (QW)
     Route: 048
  218. METHOTREXATE [Suspect]
     Active Substance: METHOTREXATE
     Dosage: 15 MILLIGRAM
     Route: 048
  219. METHOTREXATE [Suspect]
     Active Substance: METHOTREXATE
     Dosage: 2 GRAM
     Route: 048
  220. METHOTREXATE [Suspect]
     Active Substance: METHOTREXATE
     Dosage: 20 MILLIGRAM, WEEKLY (QW)
     Route: 013
  221. METHOTREXATE [Suspect]
     Active Substance: METHOTREXATE
     Dosage: UNK
     Route: 065
  222. METHOTREXATE [Suspect]
     Active Substance: METHOTREXATE
     Dosage: 25 MILLIGRAM
     Route: 058
  223. METHOTREXATE [Suspect]
     Active Substance: METHOTREXATE
     Dosage: 20 MILLIGRAM
     Route: 065
  224. METHOTREXATE [Suspect]
     Active Substance: METHOTREXATE
     Dosage: 25 MILLIGRAM, WEEKLY (QW)
     Route: 058
  225. METHOTREXATE [Suspect]
     Active Substance: METHOTREXATE
     Dosage: 500 MILLIGRAM, ONCE DAILY (QD) (2 EVERY 1 DAYS)
     Route: 065
  226. METHOTREXATE [Suspect]
     Active Substance: METHOTREXATE
     Dosage: 25 MILLIGRAM, ONCE DAILY (QD)
     Route: 013
  227. METHOTREXATE [Suspect]
     Active Substance: METHOTREXATE
     Dosage: 20 MILLIGRAM, ONCE DAILY (QD)
     Route: 048
  228. METHOTREXATE [Suspect]
     Active Substance: METHOTREXATE
     Dosage: 20 MILLIGRAM, WEEKLY (QW)
     Route: 058
  229. METHOTREXATE [Suspect]
     Active Substance: METHOTREXATE
     Dosage: 25 MILLIGRAM (STARTED 11 YEARS AGO)
     Route: 048
  230. METHOTREXATE [Suspect]
     Active Substance: METHOTREXATE
     Dosage: 20 MILLIGRAM
     Route: 065
  231. METHOTREXATE [Suspect]
     Active Substance: METHOTREXATE
     Dosage: 25 MILLIGRAM
     Route: 013
  232. METHOTREXATE [Suspect]
     Active Substance: METHOTREXATE
     Dosage: 25 MILLIGRAM, ONCE DAILY (QD)
     Route: 013
  233. METHOTREXATE [Suspect]
     Active Substance: METHOTREXATE
     Dosage: 15 MILLIGRAM
     Route: 048
  234. METHOTREXATE [Suspect]
     Active Substance: METHOTREXATE
     Dosage: 225 MILLIGRAM
     Route: 048
  235. METHOTREXATE [Suspect]
     Active Substance: METHOTREXATE
     Dosage: 2 DOSAGE FORM, ONCE DAILY (QD)
     Route: 048
  236. METHOTREXATE [Suspect]
     Active Substance: METHOTREXATE
     Dosage: 25 MILLIGRAM
     Route: 065
  237. METHOTREXATE [Suspect]
     Active Substance: METHOTREXATE
     Dosage: 25 MILLIGRAM, ONCE DAILY (QD)
     Route: 048
  238. METHOTREXATE [Suspect]
     Active Substance: METHOTREXATE
     Dosage: 25 MILLIGRAM, WEEKLY (QW)
     Route: 048
  239. METHOTREXATE [Suspect]
     Active Substance: METHOTREXATE
     Dosage: 25 MILLIGRAM, WEEKLY (QW)
     Route: 058
  240. METHOTREXATE [Suspect]
     Active Substance: METHOTREXATE
     Dosage: 20 MILLIGRAM, ONCE DAILY (QD)
     Route: 048
  241. METHOTREXATE [Suspect]
     Active Substance: METHOTREXATE
     Dosage: 1 DOSAGE FORM
     Route: 048
  242. METHOTREXATE [Suspect]
     Active Substance: METHOTREXATE
     Dosage: 25 MILLIGRAM, ONCE DAILY (QD)
     Route: 058
  243. MYCOPHENOLATE MOFETIL [Suspect]
     Active Substance: MYCOPHENOLATE MOFETIL
     Indication: Product used for unknown indication
     Dosage: UNK
     Route: 065
  244. NAPROXEN SODIUM [Suspect]
     Active Substance: NAPROXEN SODIUM
     Indication: Product used for unknown indication
     Dosage: 500 MILLIGRAM
     Route: 065
  245. NAPROXEN SODIUM [Suspect]
     Active Substance: NAPROXEN SODIUM
     Indication: Rheumatoid arthritis
     Dosage: 500 MILLIGRAM
     Route: 065
  246. NEOMYCIN [Suspect]
     Active Substance: NEOMYCIN
     Indication: Product used for unknown indication
     Dosage: UNK
     Route: 065
  247. ORENCIA [Suspect]
     Active Substance: ABATACEPT
     Indication: Product used for unknown indication
     Dosage: UNK
     Route: 058
  248. ORENCIA [Suspect]
     Active Substance: ABATACEPT
     Indication: Rheumatoid arthritis
     Dosage: 125 MILLIGRAM
     Route: 058
  249. ORENCIA [Suspect]
     Active Substance: ABATACEPT
     Dosage: UNK (STARTED 11 YEARS AGO)
     Route: 058
  250. ORENCIA [Suspect]
     Active Substance: ABATACEPT
     Dosage: UNK
     Route: 041
  251. ORENCIA [Suspect]
     Active Substance: ABATACEPT
     Dosage: UNK
     Route: 042
  252. ORENCIA [Suspect]
     Active Substance: ABATACEPT
     Dosage: UNK
     Route: 042
  253. ORENCIA [Suspect]
     Active Substance: ABATACEPT
     Dosage: UNK
     Route: 058
  254. ORENCIA [Suspect]
     Active Substance: ABATACEPT
     Dosage: 5 MILLIGRAM
     Route: 065
  255. ORENCIA [Suspect]
     Active Substance: ABATACEPT
     Dosage: UNK
     Route: 065
  256. OTEZLA [Suspect]
     Active Substance: APREMILAST
     Indication: Product used for unknown indication
     Dosage: 3 MILLIGRAM
     Route: 048
  257. OXYCODONE [Suspect]
     Active Substance: OXYCODONE
     Indication: Product used for unknown indication
     Dosage: UNK
     Route: 065
  258. CORTISONE (HYDROCORTISONE) [Suspect]
     Active Substance: HYDROCORTISONE
     Indication: Product used for unknown indication
     Dosage: UNK
     Route: 065
  259. CORTISONE (HYDROCORTISONE) [Suspect]
     Active Substance: HYDROCORTISONE
     Indication: Rheumatoid arthritis
     Route: 061
  260. CORTISONE (HYDROCORTISONE) [Suspect]
     Active Substance: HYDROCORTISONE
     Route: 048
  261. CORTISONE (HYDROCORTISONE) [Suspect]
     Active Substance: HYDROCORTISONE
     Route: 003
  262. CORTISONE (HYDROCORTISONE) [Suspect]
     Active Substance: HYDROCORTISONE
     Route: 058
  263. CORTISONE (HYDROCORTISONE) [Suspect]
     Active Substance: HYDROCORTISONE
     Route: 003
  264. CORTISONE (HYDROCORTISONE) [Suspect]
     Active Substance: HYDROCORTISONE
     Route: 048
  265. CORTISONE (HYDROCORTISONE) [Suspect]
     Active Substance: HYDROCORTISONE
     Route: 058
  266. CORTISONE (HYDROCORTISONE) [Suspect]
     Active Substance: HYDROCORTISONE
     Route: 065
  267. OXYCODONE TEREPHTHALATE [Suspect]
     Active Substance: OXYCODONE TEREPHTHALATE
     Indication: Product used for unknown indication
     Dosage: UNK
     Route: 016
  268. OXYCODONE TEREPHTHALATE [Suspect]
     Active Substance: OXYCODONE TEREPHTHALATE
     Dosage: UNK
     Route: 065
  269. PERIOGARD [Suspect]
     Active Substance: CHLORHEXIDINE GLUCONATE
     Indication: Product used for unknown indication
     Dosage: UNK
     Route: 016
  270. PERIOGARD [Suspect]
     Active Substance: CHLORHEXIDINE GLUCONATE
     Dosage: UNK
     Route: 065
  271. PERIOGARD [Suspect]
     Active Substance: CHLORHEXIDINE GLUCONATE
     Dosage: UNK
     Route: 002
  272. PHTHALYLSULFATHIAZOLE [Suspect]
     Active Substance: PHTHALYLSULFATHIAZOLE
     Indication: Product used for unknown indication
     Dosage: UNK
     Route: 016
  273. PHTHALYLSULFATHIAZOLE [Suspect]
     Active Substance: PHTHALYLSULFATHIAZOLE
     Indication: Rheumatoid arthritis
     Dosage: 500 MILLIGRAM
     Route: 048
  274. PHTHALYLSULFATHIAZOLE [Suspect]
     Active Substance: PHTHALYLSULFATHIAZOLE
     Dosage: UNK
     Route: 065
  275. PHTHALYLSULFATHIAZOLE [Suspect]
     Active Substance: PHTHALYLSULFATHIAZOLE
     Dosage: 2000 MILLIGRAM
     Route: 048
  276. PHTHALYLSULFATHIAZOLE [Suspect]
     Active Substance: PHTHALYLSULFATHIAZOLE
     Dosage: 400 MILLIGRAM
     Route: 065
  277. PHTHALYLSULFATHIAZOLE [Suspect]
     Active Substance: PHTHALYLSULFATHIAZOLE
     Dosage: UNK
     Route: 042
  278. PHTHALYLSULFATHIAZOLE [Suspect]
     Active Substance: PHTHALYLSULFATHIAZOLE
     Dosage: 1000 MILLIGRAM
     Route: 048
  279. TRAMADOL HYDROCHLORIDE [Suspect]
     Active Substance: TRAMADOL HYDROCHLORIDE
     Indication: Product used for unknown indication
     Route: 065
  280. PREDNISONE [Suspect]
     Active Substance: PREDNISONE
     Indication: Product used for unknown indication
     Dosage: UNK
     Route: 042
  281. PREDNISONE [Suspect]
     Active Substance: PREDNISONE
     Indication: Rheumatoid arthritis
     Dosage: UNK
     Route: 048
  282. PREDNISONE [Suspect]
     Active Substance: PREDNISONE
     Indication: Psoriatic arthropathy
     Dosage: 40 MILLIGRAM
     Route: 048
  283. PREDNISONE [Suspect]
     Active Substance: PREDNISONE
     Indication: Condition aggravated
     Dosage: 1 MILLIGRAM
     Route: 065
  284. PREDNISONE [Suspect]
     Active Substance: PREDNISONE
     Dosage: 5 MILLIGRAM
     Route: 065
  285. PREDNISONE [Suspect]
     Active Substance: PREDNISONE
     Dosage: 7.5 MILLIGRAM
     Route: 048
  286. PREDNISONE [Suspect]
     Active Substance: PREDNISONE
     Dosage: 10 MILLIGRAM
     Route: 048
  287. PREDNISONE [Suspect]
     Active Substance: PREDNISONE
     Dosage: UNK
     Route: 065
  288. PREDNISONE [Suspect]
     Active Substance: PREDNISONE
     Dosage: UNK
     Route: 065
  289. PREDNISONE [Suspect]
     Active Substance: PREDNISONE
     Dosage: UNK
     Route: 065
  290. PREDNISONE [Suspect]
     Active Substance: PREDNISONE
     Dosage: 5 MILLIGRAM
     Route: 065
  291. PREGABALIN [Suspect]
     Active Substance: PREGABALIN
     Indication: Product used for unknown indication
     Dosage: UNK
     Route: 065
  292. RITUXIMAB [Suspect]
     Active Substance: RITUXIMAB
     Indication: Product used for unknown indication
     Dosage: UNK
     Route: 041
  293. RITUXIMAB [Suspect]
     Active Substance: RITUXIMAB
     Indication: Rheumatoid arthritis
     Dosage: UNK
     Route: 058
  294. RITUXIMAB [Suspect]
     Active Substance: RITUXIMAB
     Dosage: UNK
     Route: 042
  295. SULFASALAZINE [Suspect]
     Active Substance: SULFASALAZINE
     Indication: Product used for unknown indication
     Dosage: 1 GRAM
     Route: 048
  296. SULFASALAZINE [Suspect]
     Active Substance: SULFASALAZINE
     Indication: Rheumatoid arthritis
     Dosage: 1 GRAM
     Route: 065
  297. SULFASALAZINE [Suspect]
     Active Substance: SULFASALAZINE
     Dosage: 1000 MILLIGRAM
     Route: 048
  298. SULFASALAZINE [Suspect]
     Active Substance: SULFASALAZINE
     Dosage: 500 MILLIGRAM
     Route: 048
  299. SULFASALAZINE [Suspect]
     Active Substance: SULFASALAZINE
     Dosage: 1 GRAM, ONCE DAILY (QD)
     Route: 048
  300. SULFAMETHOXAZOLE [Suspect]
     Active Substance: SULFAMETHOXAZOLE
     Indication: Product used for unknown indication
     Dosage: UNK
     Route: 065
  301. SULFAMETHOXAZOLE AND TRIMETHOPRIM [Suspect]
     Active Substance: SULFAMETHOXAZOLE\TRIMETHOPRIM
     Indication: Product used for unknown indication
     Dosage: UNK
     Route: 065
  302. SULFASALAZINE [Suspect]
     Active Substance: SULFASALAZINE
     Indication: Product used for unknown indication
     Dosage: 1000 MILLIGRAM, ONCE DAILY (QD)
     Route: 048
  303. SULFASALAZINE [Suspect]
     Active Substance: SULFASALAZINE
     Indication: Rheumatoid arthritis
     Dosage: 500 MILLIGRAM
     Route: 048
  304. SULFASALAZINE [Suspect]
     Active Substance: SULFASALAZINE
     Dosage: UNK
     Route: 048
  305. SULFASALAZINE [Suspect]
     Active Substance: SULFASALAZINE
     Dosage: 500 MILLIGRAM
     Route: 065
  306. SULFASALAZINE [Suspect]
     Active Substance: SULFASALAZINE
     Dosage: 2000 MILLIGRAM
     Route: 048
  307. SULFASALAZINE [Suspect]
     Active Substance: SULFASALAZINE
     Dosage: 2 GRAM
     Route: 048
  308. SULFASALAZINE [Suspect]
     Active Substance: SULFASALAZINE
     Dosage: 1 GRAM
     Route: 048
  309. SULFASALAZINE [Suspect]
     Active Substance: SULFASALAZINE
     Dosage: 1 GRAM
     Route: 058
  310. SULFASALAZINE [Suspect]
     Active Substance: SULFASALAZINE
     Dosage: 500 MILLIGRAM
     Route: 058
  311. SULFASALAZINE [Suspect]
     Active Substance: SULFASALAZINE
     Dosage: 1000 MILLIGRAM
     Route: 048
  312. SULFASALAZINE [Suspect]
     Active Substance: SULFASALAZINE
     Dosage: 1000 MILLIGRAM
     Route: 048
  313. SULFASALAZINE [Suspect]
     Active Substance: SULFASALAZINE
     Dosage: 1 GRAM
     Route: 065
  314. SULFASALAZINE [Suspect]
     Active Substance: SULFASALAZINE
     Dosage: 1 GRAM
     Route: 048
  315. SULFASALAZINE [Suspect]
     Active Substance: SULFASALAZINE
     Dosage: 1000 MILLIGRAM
     Route: 048
  316. SULFASALAZINE [Suspect]
     Active Substance: SULFASALAZINE
     Dosage: 1 GRAM
     Route: 065
  317. SULFASALAZINE [Suspect]
     Active Substance: SULFASALAZINE
     Dosage: 2 GRAM
     Route: 065
  318. SULFASALAZINE [Suspect]
     Active Substance: SULFASALAZINE
     Dosage: 2000 MILLIGRAM
     Route: 048
  319. SULFASALAZINE [Suspect]
     Active Substance: SULFASALAZINE
     Dosage: 1 GRAM, ONCE DAILY (QD)
     Route: 065
  320. SULFASALAZINE [Suspect]
     Active Substance: SULFASALAZINE
     Dosage: UNK
     Route: 065
  321. SULFASALAZINE [Suspect]
     Active Substance: SULFASALAZINE
     Dosage: 4000 MILLIGRAM
     Route: 048
  322. SULFASALAZINE [Suspect]
     Active Substance: SULFASALAZINE
     Dosage: 500 MILLIGRAM
     Route: 048
  323. SULFASALAZINE [Suspect]
     Active Substance: SULFASALAZINE
     Dosage: UNK
     Route: 065
  324. SULFASALAZINE [Suspect]
     Active Substance: SULFASALAZINE
     Dosage: 500 MILLIGRAM
     Route: 048
  325. TOCILIZUMAB [Suspect]
     Active Substance: TOCILIZUMAB
     Indication: Product used for unknown indication
     Dosage: UNK
     Route: 058
  326. TOCILIZUMAB [Suspect]
     Active Substance: TOCILIZUMAB
     Indication: Rheumatoid arthritis
     Dosage: UNK
     Route: 065
  327. TOFACITINIB CITRATE [Suspect]
     Active Substance: TOFACITINIB CITRATE
     Indication: Product used for unknown indication
     Dosage: UNK
     Route: 065
  328. TOFACITINIB CITRATE [Suspect]
     Active Substance: TOFACITINIB CITRATE
     Indication: Rheumatoid arthritis
     Dosage: UNK
     Route: 065
  329. TOFACITINIB CITRATE [Suspect]
     Active Substance: TOFACITINIB CITRATE
     Indication: Psoriatic arthropathy
     Dosage: UNK
     Route: 065
  330. TRIAMCINOLONE ACETONIDE [Suspect]
     Active Substance: TRIAMCINOLONE ACETONIDE
     Indication: Rheumatoid arthritis
     Dosage: SUSPENSION INTRAARTICULAR
     Route: 065
  331. VITAMIN C [Suspect]
     Active Substance: ASCORBIC ACID
     Indication: Product used for unknown indication
     Dosage: UNK
     Route: 016
  332. VITAMIN C [Suspect]
     Active Substance: ASCORBIC ACID
     Dosage: UNK
     Route: 065
  333. VITAMIN D3 [Suspect]
     Active Substance: CHOLECALCIFEROL
     Indication: Product used for unknown indication
     Dosage: UNK
     Route: 065
  334. PREDNISONE [Suspect]
     Active Substance: PREDNISONE
     Indication: Product used for unknown indication
     Dosage: UNK
     Route: 065
  335. PREDNISONE [Suspect]
     Active Substance: PREDNISONE
     Indication: Rheumatoid arthritis
     Dosage: UNK
     Route: 048
  336. XELJANZ [Suspect]
     Active Substance: TOFACITINIB CITRATE
     Indication: Product used for unknown indication
     Dosage: 5 MILLIGRAM
     Route: 065
  337. XELJANZ [Suspect]
     Active Substance: TOFACITINIB CITRATE
     Indication: Rheumatoid arthritis
     Dosage: 5 MILLIGRAM
     Route: 048
  338. XELJANZ [Suspect]
     Active Substance: TOFACITINIB CITRATE
     Dosage: 5 MILLIGRAM
     Route: 048
  339. XELJANZ [Suspect]
     Active Substance: TOFACITINIB CITRATE
     Dosage: 5 MILLIGRAM
     Route: 065
  340. XELJANZ [Suspect]
     Active Substance: TOFACITINIB CITRATE
     Dosage: UNK
     Route: 048
  341. XELJANZ [Suspect]
     Active Substance: TOFACITINIB CITRATE
     Dosage: 10 MILLIGRAM, ONCE DAILY (QD)
     Route: 065
  342. HYDROCORTISONE SODIUM SUCCINATE [Suspect]
     Active Substance: HYDROCORTISONE SODIUM SUCCINATE
     Indication: Product used for unknown indication
     Dosage: 25 MILLIGRAM
     Route: 065
  343. HYDROCORTISONE SODIUM SUCCINATE [Suspect]
     Active Substance: HYDROCORTISONE SODIUM SUCCINATE
     Indication: Rheumatoid arthritis
     Route: 048
  344. HYDROCORTISONE SODIUM SUCCINATE [Suspect]
     Active Substance: HYDROCORTISONE SODIUM SUCCINATE
     Route: 065
  345. OXYCODONE HYDROCHLORIDE [Suspect]
     Active Substance: OXYCODONE HYDROCHLORIDE
     Indication: Product used for unknown indication
     Route: 065

REACTIONS (60)
  - C-reactive protein [Fatal]
  - Dry mouth [Fatal]
  - Duodenal ulcer perforation [Fatal]
  - Facet joint syndrome [Fatal]
  - Fatigue [Fatal]
  - Fibromyalgia [Fatal]
  - Folliculitis [Fatal]
  - General physical health deterioration [Fatal]
  - Glossodynia [Fatal]
  - Hand deformity [Fatal]
  - Helicobacter infection [Fatal]
  - Hepatic enzyme increased [Fatal]
  - Hypersensitivity [Fatal]
  - Hypertension [Fatal]
  - Hypoaesthesia [Fatal]
  - Ill-defined disorder [Fatal]
  - Impaired healing [Fatal]
  - Infection [Fatal]
  - Inflammation [Fatal]
  - Infusion related reaction [Fatal]
  - Injury [Fatal]
  - Insomnia [Fatal]
  - Irritable bowel syndrome [Fatal]
  - Joint range of motion decreased [Fatal]
  - Joint swelling [Fatal]
  - Lip dry [Fatal]
  - Liver disorder [Fatal]
  - Malaise [Fatal]
  - Mobility decreased [Fatal]
  - Pruritus [Fatal]
  - Psoriatic arthropathy [Fatal]
  - Pyrexia [Fatal]
  - Rash [Fatal]
  - Rheumatic fever [Fatal]
  - Rheumatoid arthritis [Fatal]
  - Rheumatoid factor positive [Fatal]
  - Road traffic accident [Fatal]
  - Sciatica [Fatal]
  - Sinusitis [Fatal]
  - Sleep disorder [Fatal]
  - Sleep disorder due to general medical condition, insomnia type [Fatal]
  - Stomatitis [Fatal]
  - Swelling [Fatal]
  - Swollen joint count increased [Fatal]
  - Synovitis [Fatal]
  - Systemic lupus erythematosus [Fatal]
  - Type 2 diabetes mellitus [Fatal]
  - Urticaria [Fatal]
  - Vomiting [Fatal]
  - Weight increased [Fatal]
  - Wheezing [Fatal]
  - Wound [Fatal]
  - Drug intolerance [Unknown]
  - Therapeutic product effect decreased [Unknown]
  - Therapy non-responder [Unknown]
  - Treatment failure [Unknown]
  - Drug ineffective [Unknown]
  - Medication error [Unknown]
  - Product use in unapproved indication [Unknown]
  - Off label use [Unknown]
